FAERS Safety Report 10993365 (Version 1)
Quarter: 2015Q2

REPORT INFORMATION
  Report Type: Spontaneous
  Country: US (occurrence: US)
  Receive Date: 20150407
  Receipt Date: 20150407
  Transmission Date: 20150821
  Serious: No
  Sender: FDA-Public Use
  Company Number: US-ASTRAZENECA-2015SE28459

PATIENT
  Age: 23491 Day
  Sex: Female
  Weight: 42.6 kg

DRUGS (3)
  1. BONIVA [Concomitant]
     Active Substance: IBANDRONATE SODIUM
     Indication: OSTEOPOROSIS
     Route: 048
     Dates: start: 2013
  2. CRESTOR [Suspect]
     Active Substance: ROSUVASTATIN CALCIUM
     Route: 048
     Dates: start: 20150118
  3. LANTUS [Concomitant]
     Active Substance: INSULIN GLARGINE
     Indication: DIABETES MELLITUS
     Route: 058
     Dates: start: 2012

REACTIONS (9)
  - Weight decreased [Unknown]
  - Intentional product misuse [Unknown]
  - Drug dose omission [Unknown]
  - Inflammation [Unknown]
  - Pain [Unknown]
  - Cystitis [Unknown]
  - White blood cell count increased [Unknown]
  - Sleep disorder [Unknown]
  - Dyspepsia [Unknown]

NARRATIVE: CASE EVENT DATE: 201503
